FAERS Safety Report 5229721-8 (Version None)
Quarter: 2007Q1

REPORT INFORMATION
  Report Type: 
  Country: None (occurrence: None)
  Receive Date: 20070206
  Receipt Date: 20070129
  Transmission Date: 20070707
  Serious: Yes (Other)
  Sender: FDA-Public Use
  Company Number: JP-PFIZER INC-2007004427

PATIENT
  Sex: Female

DRUGS (5)
  1. ZOLOFT [Suspect]
     Indication: DEPRESSION
     Route: 048
     Dates: start: 20061110, end: 20061220
  2. HALCION [Concomitant]
     Route: 048
  3. LEXOTAN [Concomitant]
     Route: 048
     Dates: start: 20060929
  4. PAXIL [Concomitant]
     Route: 048
     Dates: start: 20060729, end: 20061117
  5. LUVOX [Concomitant]
     Route: 048

REACTIONS (5)
  - DEPRESSION [None]
  - FRUSTRATION [None]
  - SPEECH DISORDER [None]
  - SUICIDAL IDEATION [None]
  - SUICIDE ATTEMPT [None]
